FAERS Safety Report 5748127-6 (Version None)
Quarter: 2008Q2

REPORT INFORMATION
  Report Type: 
  Country: None (occurrence: None)
  Receive Date: 20080523
  Receipt Date: 20080430
  Transmission Date: 20081010
  Serious: No
  Sender: FDA-Public Use
  Company Number: US-BOEHRINGER INGELHEIM GMBH, GERMANY-2008-BP-06877BP

PATIENT
  Age: 68 Year
  Sex: Female

DRUGS (7)
  1. COMBIVENT [Suspect]
     Indication: ASTHMA
     Route: 055
     Dates: start: 20000101
  2. ALBUTEROL [Concomitant]
     Indication: ASTHMA
  3. PULMICORT [Concomitant]
     Indication: ASTHMA
  4. VALIUM [Concomitant]
     Indication: ANXIETY
  5. LEVOTHYROIXIN [Concomitant]
     Indication: HYPOTHYROIDISM
  6. LISINOPRIL [Concomitant]
     Indication: HYPERTENSION
  7. FISH OIL [Concomitant]
     Indication: BLOOD PRESSURE

REACTIONS (1)
  - DYSPNOEA [None]
